FAERS Safety Report 4993568-8 (Version None)
Quarter: 2006Q2

REPORT INFORMATION
  Report Type: 
  Country: None (occurrence: None)
  Receive Date: 20060504
  Receipt Date: 20060504
  Transmission Date: 20061013
  Serious: Yes (Hospitalization)
  Sender: FDA-Public Use
  Company Number: None

PATIENT
  Age: 18 Year
  Sex: Female
  Weight: 57.6 kg

DRUGS (6)
  1. FLUOXETINE [Suspect]
     Indication: DEPRESSION
     Dosage: 30MG  PO  DAILY  (DURATION: AT LEAST A MONTH)
     Route: 048
  2. SEROQUEL [Suspect]
     Indication: INSOMNIA
     Dosage: 25MG   2-4 PRN INSOMNIA  (DURATION: SINCE LATE DEC 05)
     Dates: start: 20051201
  3. YASMIN [Concomitant]
  4. BENADRYL [Concomitant]
  5. CLARITIN [Concomitant]
  6. ZOFRAN [Concomitant]

REACTIONS (7)
  - HYPERTENSION [None]
  - LIVER FUNCTION TEST ABNORMAL [None]
  - LOSS OF CONSCIOUSNESS [None]
  - NEUROLEPTIC MALIGNANT SYNDROME [None]
  - RHABDOMYOLYSIS [None]
  - SEROTONIN SYNDROME [None]
  - THERAPY NON-RESPONDER [None]
